FAERS Safety Report 9994008 (Version 1)
Quarter: 2014Q1

REPORT INFORMATION
  Report Type: Spontaneous
  Country: US (occurrence: US)
  Receive Date: 20140310
  Receipt Date: 20140310
  Transmission Date: 20141002
  Serious: No
  Sender: FDA-Public Use
  Company Number: US-AMGEN-USASP2014007366

PATIENT
  Age: 58 Year
  Sex: Female

DRUGS (2)
  1. SENSIPAR [Suspect]
     Indication: HYPERPARATHYROIDISM SECONDARY
     Dosage: 30 MG, QOD
     Route: 048
  2. HECTOROL [Concomitant]

REACTIONS (1)
  - Blood parathyroid hormone abnormal [Not Recovered/Not Resolved]
